FAERS Safety Report 8523899-6 (Version None)
Quarter: 2012Q3

REPORT INFORMATION
  Report Type: 
  Country: None (occurrence: None)
  Receive Date: 20120719
  Receipt Date: 20120430
  Transmission Date: 20120928
  Serious: No
  Sender: FDA-Public Use
  Company Number: DL2012-0354

PATIENT
  Age: 36 Year
  Sex: Female

DRUGS (2)
  1. MIFEPRISTONE (MIFEPREX) [Suspect]
     Indication: ABORTION INDUCED
     Dosage: 200 MG, ORAL
     Route: 048
     Dates: start: 20120309
  2. MISOPROSTOL [Suspect]
     Dosage: 800 MG, VAGINAL
     Route: 067
     Dates: start: 20120311, end: 20120330

REACTIONS (1)
  - ABORTION INCOMPLETE [None]
